FAERS Safety Report 8202246-3 (Version None)
Quarter: 2012Q1

REPORT INFORMATION
  Report Type: 
  Country: None (occurrence: None)
  Receive Date: 20120312
  Receipt Date: 20120302
  Transmission Date: 20120608
  Serious: Yes (Hospitalization)
  Sender: FDA-Public Use
  Company Number: GB-ASTRAZENECA-2012SE14721

PATIENT
  Age: 65 Year
  Sex: Male

DRUGS (8)
  1. METFORMIN HCL [Concomitant]
  2. LANSOPRAZOLE [Concomitant]
  3. PAROXETINE [Concomitant]
  4. LISINOPRIL [Suspect]
     Indication: MYOCARDIAL INFARCTION
     Route: 048
     Dates: end: 20120222
  5. GLIMEPIRIDE [Concomitant]
  6. ATENOLOL [Concomitant]
  7. ASPIRIN [Concomitant]
  8. PRAVASTATIN [Concomitant]

REACTIONS (2)
  - NEUTROPHILIA [None]
  - ANAPHYLACTIC REACTION [None]
